FAERS Safety Report 9664201 (Version 2)
Quarter: 2013Q4

REPORT INFORMATION
  Report Type: Report from Study
  Country: US (occurrence: US)
  Receive Date: 20131101
  Receipt Date: 20131114
  Transmission Date: 20140711
  Serious: No
  Sender: FDA-Public Use
  Company Number: US-JNJFOC-20131017298

PATIENT
  Age: 62 Year
  Sex: Female
  Weight: 138.35 kg

DRUGS (2)
  1. USTEKINUMAB [Suspect]
     Indication: PSORIASIS
     Route: 058
     Dates: start: 200608, end: 201104
  2. ADALIMUMAB [Suspect]
     Indication: PSORIASIS
     Route: 065
     Dates: start: 20111001

REACTIONS (1)
  - Resting tremor [Not Recovered/Not Resolved]
